FAERS Safety Report 6709839-0 (Version None)
Quarter: 2010Q2

REPORT INFORMATION
  Report Type: 
  Country: None (occurrence: None)
  Receive Date: 20100504
  Receipt Date: 20100430
  Transmission Date: 20101027
  Serious: Yes (Death)
  Sender: FDA-Public Use
  Company Number: A0856932A

PATIENT
  Sex: Female

DRUGS (2)
  1. PROMACTA [Suspect]
     Dosage: 25MG PER DAY
     Dates: start: 20090721
  2. WINRHO SD [Concomitant]
     Indication: IDIOPATHIC THROMBOCYTOPENIC PURPURA

REACTIONS (1)
  - AMYOTROPHIC LATERAL SCLEROSIS [None]
